FAERS Safety Report 8352518-7 (Version None)
Quarter: 2012Q2

REPORT INFORMATION
  Report Type: 
  Country: None (occurrence: None)
  Receive Date: 20120511
  Receipt Date: 20120509
  Transmission Date: 20120825
  Serious: Yes (Death, Hospitalization)
  Sender: FDA-Public Use
  Company Number: JP-B.I. PHARMACEUTICALS,INC./RIDGEFIELD-2012-BP-09428NB

PATIENT
  Sex: Male
  Weight: 60 kg

DRUGS (10)
  1. LANIRAPID [Concomitant]
     Indication: ATRIAL FIBRILLATION
     Dosage: 0.1 MG
     Route: 048
     Dates: start: 20030703
  2. TENORMIN [Concomitant]
     Indication: TACHYCARDIA
  3. TENORMIN [Concomitant]
     Indication: HYPERTENSION
     Dosage: 25 MG
     Route: 048
     Dates: start: 20030709
  4. LAMISIL [Concomitant]
     Indication: ONYCHOMYCOSIS
     Dosage: 125 MG
     Route: 048
     Dates: start: 20120110
  5. ZOLPIDEM [Concomitant]
     Indication: INSOMNIA
     Dosage: 10 MG
     Route: 048
     Dates: start: 20090609
  6. PRADAXA [Suspect]
     Indication: CEREBROVASCULAR ACCIDENT PROPHYLAXIS
     Dosage: 300 MG
     Route: 048
     Dates: start: 20110327
  7. BUP-4 [Concomitant]
     Indication: NOCTURIA
     Dosage: 10 MG
     Route: 048
     Dates: start: 20090609
  8. TENORMIN [Concomitant]
     Indication: ATRIAL FIBRILLATION
  9. FAMOTIDINE [Concomitant]
     Indication: PROPHYLAXIS AGAINST GASTROINTESTINAL ULCER
     Dosage: 20 MG
     Route: 048
     Dates: start: 20100313
  10. TANATRIL [Concomitant]
     Indication: HYPERTENSION
     Dosage: 5 MG
     Route: 048
     Dates: start: 20090609

REACTIONS (2)
  - BRAIN HERNIATION [None]
  - SUBDURAL HAEMATOMA [None]
